FAERS Safety Report 5267836-9 (Version None)
Quarter: 2007Q1

REPORT INFORMATION
  Report Type: 
  Country: None (occurrence: None)
  Receive Date: 20070316
  Receipt Date: 20041201
  Transmission Date: 20070707
  Serious: Yes (Other)
  Sender: FDA-Public Use
  Company Number: US-PFIZER INC-2007019316

PATIENT
  Sex: Male

DRUGS (3)
  1. CELEBREX [Suspect]
  2. BEXTRA [Suspect]
  3. VIOXX [Suspect]

REACTIONS (2)
  - CHEST PAIN [None]
  - CONVULSION [None]
